FAERS Safety Report 9018017 (Version 3)
Quarter: 2013Q1

REPORT INFORMATION
  Report Type: Spontaneous
  Country: US (occurrence: US)
  Receive Date: 20130118
  Receipt Date: 20130309
  Transmission Date: 20140127
  Serious: Yes (Other)
  Sender: FDA-Public Use
  Company Number: US-AMGEN-USASP2013002072

PATIENT
  Age: 70 Year
  Sex: Male
  Weight: 87.53 kg

DRUGS (9)
  1. PROLIA [Suspect]
     Indication: OSTEOPOROSIS
     Dosage: UNK
     Dates: start: 201206
  2. QUINAPRIL HCL AND HYDROCHLOROTHIAZIDE [Concomitant]
  3. ATENOLOL [Concomitant]
  4. LIPITOR [Concomitant]
  5. AMBIEN [Concomitant]
  6. TAMSULOSIN [Concomitant]
  7. CELEBREX [Concomitant]
  8. VALTREX [Concomitant]
  9. PREVACID [Concomitant]

REACTIONS (1)
  - Angioedema [Recovered/Resolved]
